FAERS Safety Report 10184140 (Version 1)
Quarter: 2014Q2

REPORT INFORMATION
  Report Type: Other
  Country: US (occurrence: US)
  Receive Date: 20140520
  Receipt Date: 20140520
  Transmission Date: 20141212
  Serious: Yes (Death)
  Sender: FDA-Public Use
  Company Number: US-FRI-1000067403

PATIENT
  Sex: 0

DRUGS (1)
  1. TEFLARO [Suspect]
     Dosage: 600 MG EVERY 12 HOURS
     Route: 042

REACTIONS (1)
  - Death [Fatal]
